FAERS Safety Report 13646283 (Version 2)
Quarter: 2017Q2

REPORT INFORMATION
  Report Type: Spontaneous
  Country: US (occurrence: US)
  Receive Date: 20170613
  Receipt Date: 20170620
  Transmission Date: 20170830
  Serious: Yes (Other)
  Sender: FDA-Public Use
  Company Number: US-DRREDDYS-USA/USA/17/0091214

PATIENT
  Age: 55 Year
  Sex: Female

DRUGS (8)
  1. TACROLIMUS. [Suspect]
     Active Substance: TACROLIMUS
     Route: 048
  2. SIROLIMUS. [Suspect]
     Active Substance: SIROLIMUS
     Indication: IMMUNOSUPPRESSION
     Dosage: WITH A GOAL TROUGH 6 TO 8 NG/ML
     Route: 065
  3. SIROLIMUS. [Suspect]
     Active Substance: SIROLIMUS
     Route: 048
  4. POSACONAZOLE [Suspect]
     Active Substance: POSACONAZOLE
     Indication: SALVAGE THERAPY
     Route: 048
  5. MYCOPHENOLATE MOFETIL. [Suspect]
     Active Substance: MYCOPHENOLATE MOFETIL
     Indication: IMMUNOSUPPRESSION
     Route: 048
  6. SIROLIMUS. [Suspect]
     Active Substance: SIROLIMUS
     Route: 048
  7. BASILIXIMAB [Concomitant]
     Active Substance: BASILIXIMAB
     Indication: PRODUCT USED FOR UNKNOWN INDICATION
     Route: 065
  8. TACROLIMUS. [Suspect]
     Active Substance: TACROLIMUS
     Indication: IMMUNOSUPPRESSION
     Dosage: 6 TO 8 NG/ML
     Route: 065

REACTIONS (14)
  - Headache [Unknown]
  - Neurotoxicity [Unknown]
  - Transaminases increased [Unknown]
  - Liver transplant rejection [Unknown]
  - Drug ineffective [Unknown]
  - Blood creatinine increased [Not Recovered/Not Resolved]
  - Mucormycosis [Recovered/Resolved]
  - Pseudomonas infection [Unknown]
  - Hepatic enzyme increased [Unknown]
  - Blood bilirubin increased [Unknown]
  - Nephropathy toxic [Unknown]
  - Drug intolerance [Unknown]
  - Paraesthesia [Unknown]
  - Drug interaction [Unknown]
